FAERS Safety Report 5906426-9 (Version None)
Quarter: 2008Q4

REPORT INFORMATION
  Report Type: 
  Country: None (occurrence: None)
  Receive Date: 20081002
  Receipt Date: 20020904
  Transmission Date: 20090506
  Serious: No
  Sender: FDA-Public Use
  Company Number: US-ABBOTT-08P-163-0451202-00

PATIENT
  Sex: Female

DRUGS (2)
  1. TRICOR [Suspect]
     Indication: DRUG USE FOR UNKNOWN INDICATION
  2. WARFARIN SODIUM [Interacting]

REACTIONS (2)
  - CHOLELITHIASIS [None]
  - DRUG INTERACTION [None]
